FAERS Safety Report 11134276 (Version 1)
Quarter: 2015Q2

REPORT INFORMATION
  Report Type: Report from Study
  Country: CN (occurrence: CN)
  Receive Date: 20150524
  Receipt Date: 20150524
  Transmission Date: 20150821
  Serious: Yes (Death)
  Sender: FDA-Public Use
  Company Number: CN-ROCHE-1580412

PATIENT

DRUGS (4)
  1. MYCOPHENOLATE MOFETIL. [Suspect]
     Active Substance: MYCOPHENOLATE MOFETIL
     Indication: PROPHYLAXIS AGAINST TRANSPLANT REJECTION
     Route: 065
  2. CYCLOSPORINE. [Suspect]
     Active Substance: CYCLOSPORINE
     Indication: PROPHYLAXIS AGAINST TRANSPLANT REJECTION
     Route: 065
  3. TACROLIMUS. [Suspect]
     Active Substance: TACROLIMUS
     Indication: PROPHYLAXIS AGAINST TRANSPLANT REJECTION
     Route: 065
  4. PREDNISONE. [Suspect]
     Active Substance: PREDNISONE
     Indication: PROPHYLAXIS AGAINST TRANSPLANT REJECTION
     Dosage: DOSE TAPERED TO 20 MG OF PREDNISONE PER DAY BY 7 DAYS AFTER SURGERY.
     Route: 065

REACTIONS (7)
  - Staphylococcal bacteraemia [Fatal]
  - Acinetobacter bacteraemia [Fatal]
  - Septic shock [Fatal]
  - Klebsiella bacteraemia [Fatal]
  - Enterococcal bacteraemia [Fatal]
  - Pseudomonal bacteraemia [Fatal]
  - Enterobacter bacteraemia [Fatal]
